FAERS Safety Report 8956911 (Version 1)
Quarter: 2012Q4

REPORT INFORMATION
  Report Type: Spontaneous
  Country: IT (occurrence: None)
  Receive Date: 20121128
  Receipt Date: 20121128
  Transmission Date: 20130627
  Serious: Yes (Other)
  Sender: FDA-Public Use
  Company Number: AUR-APL-2012-04971

PATIENT
  Age: 47 Year
  Sex: Male

DRUGS (1)
  1. LEVOFLOXACIN (LEVOFLOXACIN) [Suspect]
     Indication: URINARY TRACT INFECTION
     Route: 048
     Dates: start: 20121020, end: 20121026

REACTIONS (2)
  - Acute psychosis [None]
  - Conduct disorder [None]
